FAERS Safety Report 6104727-5 (Version None)
Quarter: 2009Q1

REPORT INFORMATION
  Report Type: 
  Country: None (occurrence: None)
  Receive Date: 20090302
  Receipt Date: 20090217
  Transmission Date: 20090719
  Serious: Yes (Hospitalization)
  Sender: FDA-Public Use
  Company Number: 2009-00264

PATIENT
  Age: 51 Year
  Sex: Female
  Weight: 69 kg

DRUGS (4)
  1. VELCADE [Suspect]
     Indication: MULTIPLE MYELOMA
     Dosage: 2.4 MG
     Dates: start: 20090116, end: 20090203
  2. CNT0328(CNT0328) VIAL [Suspect]
     Indication: MULTIPLE MYELOMA
     Dosage: 435 MG
     Dates: start: 20090106, end: 20090121
  3. OXYCODONE HCL [Concomitant]
  4. PLACEBO [Suspect]
     Indication: MULTIPLE MYELOMA
     Dosage: 435 MG
     Dates: start: 20090106, end: 20090121

REACTIONS (10)
  - BACK PAIN [None]
  - BLOOD CREATININE INCREASED [None]
  - DYSPNOEA EXERTIONAL [None]
  - HYPERURICAEMIA [None]
  - MEDIASTINAL SHIFT [None]
  - PERICARDIAL EFFUSION [None]
  - PLEURAL EFFUSION [None]
  - RENAL FAILURE ACUTE [None]
  - ROAD TRAFFIC ACCIDENT [None]
  - TUMOUR LYSIS SYNDROME [None]
